FAERS Safety Report 6331677 (Version 2)
Quarter: 2019Q1

REPORT INFORMATION
  Report Type: Spontaneous
  Country: GB (occurrence: GB)
  Receive Date: 20070531
  Receipt Date: 20190116
  Transmission Date: 20190418
  Serious: Yes (Death, Hospitalization)
  Sender: FDA-Public Use
  Company Number: GXKR2007GB04346

PATIENT
  Age: 55 Year
  Sex: Male

DRUGS (3)
  1. PARACETAMOL [Suspect]
     Active Substance: ACETAMINOPHEN
     Indication: INTENTIONAL OVERDOSE
     Dosage: 50 G,
     Route: 048
  2. CINNARIZINE [Suspect]
     Active Substance: CINNARIZINE
     Indication: INTENTIONAL OVERDOSE
     Dosage: 1.125 G, UNK
     Route: 048
  3. ACETYLSALICYLIC ACID [Suspect]
     Active Substance: ASPIRIN
     Indication: INTENTIONAL OVERDOSE
     Dosage: 3.15 G, UNK
     Route: 048

REACTIONS (15)
  - Prothrombin time abnormal [Fatal]
  - Cardiogenic shock [Fatal]
  - Multiple organ dysfunction syndrome [Fatal]
  - Blood bilirubin increased [Fatal]
  - Acute respiratory distress syndrome [Fatal]
  - International normalised ratio increased [Fatal]
  - Blood creatinine increased [Fatal]
  - Respiratory distress [Fatal]
  - Blood glucose fluctuation [Fatal]
  - Depressed level of consciousness [Fatal]
  - Alanine aminotransferase increased [Fatal]
  - Acute kidney injury [Fatal]
  - Lactic acidosis [Fatal]
  - Agitation [Fatal]
  - Intentional overdose [Fatal]
